FAERS Safety Report 6729107-0 (Version None)
Quarter: 2010Q2

REPORT INFORMATION
  Report Type: 
  Country: None (occurrence: None)
  Receive Date: 20100517
  Receipt Date: 20100323
  Transmission Date: 20101027
  Serious: No
  Sender: FDA-Public Use
  Company Number: US-ABBOTT-10P-163-0635173-00

PATIENT
  Sex: Male
  Weight: 81.72 kg

DRUGS (4)
  1. SIMCOR [Suspect]
     Indication: BLOOD CHOLESTEROL INCREASED
     Dosage: 500/20 MG
     Dates: start: 20100219, end: 20100319
  2. SIMCOR [Suspect]
     Indication: BLOOD TRIGLYCERIDES INCREASED
     Dates: start: 20100320
  3. BENICAR [Concomitant]
     Indication: DRUG USE FOR UNKNOWN INDICATION
  4. DILANTIN [Concomitant]
     Indication: DRUG USE FOR UNKNOWN INDICATION

REACTIONS (3)
  - BLOOD PRESSURE INCREASED [None]
  - FLUSHING [None]
  - GENERALISED ERYTHEMA [None]
